FAERS Safety Report 5370820-8 (Version None)
Quarter: 2007Q2

REPORT INFORMATION
  Report Type: 
  Country: None (occurrence: None)
  Receive Date: 20070626
  Receipt Date: 20070624
  Transmission Date: 20071010
  Serious: Yes (Hospitalization)
  Sender: FDA-Public Use
  Company Number: JP-PURDUE-USA_2007_0028010

PATIENT
  Age: 51 Year
  Sex: Female

DRUGS (1)
  1. THEOPHYLLINE (SIMILAR TO 40-086) [Suspect]
     Indication: ASTHMA
     Dosage: UNK, UNK

REACTIONS (1)
  - HYPERCALCAEMIA [None]
